FAERS Safety Report 15306861 (Version 1)
Quarter: 2018Q3

REPORT INFORMATION
  Report Type: Report from Study
  Country: None (occurrence: US)
  Receive Date: 20180822
  Receipt Date: 20180822
  Transmission Date: 20181010
  Serious: No
  Sender: FDA-Public Use
  Company Number: US-BIOVITRUM-2017US0793

PATIENT
  Sex: Female

DRUGS (1)
  1. ORFADIN [Suspect]
     Active Substance: NITISINONE
     Indication: TYROSINAEMIA
     Dosage: 5 MG 3 BID
     Route: 048
     Dates: start: 20170424

REACTIONS (1)
  - Eczema [Unknown]

NARRATIVE: CASE EVENT DATE: 2017
